FAERS Safety Report 8325667-7 (Version None)
Quarter: 2012Q2

REPORT INFORMATION
  Report Type: 
  Country: None (occurrence: None)
  Receive Date: 20120501
  Receipt Date: 20120501
  Transmission Date: 20120825
  Serious: Yes (Hospitalization, Other)
  Sender: FDA-Public Use
  Company Number: None

PATIENT
  Age: 48 Year
  Sex: Female
  Weight: 55.791 kg

DRUGS (1)
  1. ADVANCED PROTECTION SPF 20 [Suspect]
     Indication: THERAPEUTIC SKIN CARE TOPICAL
     Dates: start: 20120425, end: 20120428

REACTIONS (6)
  - ERYTHEMA [None]
  - DYSPNOEA [None]
  - URTICARIA [None]
  - DERMATITIS CONTACT [None]
  - RASH MACULAR [None]
  - PRURITUS [None]
